FAERS Safety Report 24557988 (Version 1)
Quarter: 2024Q4

REPORT INFORMATION
  Report Type: Spontaneous
  Country: FR (occurrence: FR)
  Receive Date: 20241028
  Receipt Date: 20241028
  Transmission Date: 20250114
  Serious: Yes (Hospitalization, Other)
  Sender: RANBAXY
  Company Number: FR-SUN PHARMACEUTICAL INDUSTRIES LTD-2024R1-473818

PATIENT
  Sex: Male

DRUGS (1)
  1. TOPIRAMATE [Suspect]
     Active Substance: TOPIRAMATE
     Indication: Product used for unknown indication
     Dosage: UNK (700 MG)
     Route: 065

REACTIONS (7)
  - Overdose [Unknown]
  - Suicide attempt [Unknown]
  - Confusional state [Recovered/Resolved]
  - Blood bicarbonate abnormal [Recovered/Resolved]
  - Cardiac arrest [Recovered/Resolved]
  - Toxic encephalopathy [Recovered/Resolved]
  - Status epilepticus [Recovered/Resolved]
